FAERS Safety Report 20802815 (Version 3)
Quarter: 2022Q2

REPORT INFORMATION
  Report Type: Report from Study
  Country: BE (occurrence: BE)
  Receive Date: 20220509
  Receipt Date: 20220613
  Transmission Date: 20220721
  Serious: Yes (Hospitalization, Other)
  Sender: FDA-Public Use
  Company Number: BE-BRISTOL-MYERS SQUIBB COMPANY-2022-032029

PATIENT
  Age: 77 Year
  Sex: Male

DRUGS (4)
  1. OPDIVO [Suspect]
     Active Substance: NIVOLUMAB
     Indication: Malignant melanoma
     Route: 065
     Dates: start: 20210321, end: 20220530
  2. OPDIVO [Suspect]
     Active Substance: NIVOLUMAB
     Route: 065
     Dates: start: 20220321, end: 20220530
  3. YERVOY [Suspect]
     Active Substance: IPILIMUMAB
     Indication: Malignant melanoma
     Route: 065
     Dates: start: 20210321
  4. YERVOY [Suspect]
     Active Substance: IPILIMUMAB
     Route: 065
     Dates: start: 20220321, end: 20220530

REACTIONS (4)
  - Vomiting [Not Recovered/Not Resolved]
  - Amnesia [Not Recovered/Not Resolved]
  - Brain oedema [Unknown]
  - Tumour haemorrhage [Unknown]

NARRATIVE: CASE EVENT DATE: 20220322
